FAERS Safety Report 7423615-5 (Version None)
Quarter: 2011Q2

REPORT INFORMATION
  Report Type: 
  Country: None (occurrence: None)
  Receive Date: 20110411
  Receipt Date: 20110328
  Transmission Date: 20111010
  Serious: Yes (Hospitalization)
  Sender: FDA-Public Use
  Company Number: 1000019859

PATIENT
  Age: 39 Year
  Sex: Female

DRUGS (7)
  1. CALCIT (CALCIUM CARBONATE) [Concomitant]
  2. FERROUS SULFATE TAB [Concomitant]
  3. TRILEPTAL [Suspect]
     Indication: EPILEPSY
     Dosage: 600 MG (300 MG, 2 IN 1 D), ORAL
     Route: 048
     Dates: end: 20110128
  4. ESCITALOPRAM OXALATE [Suspect]
     Indication: DEPRESSION
     Dosage: 10 MG (10 MG, 1 IN 1 D), ORAL
     Route: 048
     Dates: start: 20101230, end: 20110128
  5. NOOTROPYL (PIRACETAM)(TABLETS) [Suspect]
     Dosage: 800 MG (800 MG, 1 IN 1 D), ORAL
     Route: 048
     Dates: end: 20110128
  6. PANTOPRAZOLE SODIUM [Concomitant]
  7. LEVOTHYROXINE SODIUM [Concomitant]

REACTIONS (5)
  - SOMNOLENCE [None]
  - PSYCHOMOTOR RETARDATION [None]
  - CONDITION AGGRAVATED [None]
  - CYTOLYTIC HEPATITIS [None]
  - CHOLESTASIS [None]
